FAERS Safety Report 6733793-9 (Version None)
Quarter: 2010Q2

REPORT INFORMATION
  Report Type: 
  Country: None (occurrence: None)
  Receive Date: 20100520
  Receipt Date: 20100518
  Transmission Date: 20101027
  Serious: Yes (Life-Threatening, Hospitalization, Other)
  Sender: FDA-Public Use
  Company Number: IT-BRISTOL-MYERS SQUIBB COMPANY-14955652

PATIENT
  Age: 52 Year
  Sex: Male
  Weight: 62 kg

DRUGS (8)
  1. CETUXIMAB [Suspect]
     Indication: HEAD AND NECK CANCER
     Dosage: MOST RECENT INFUSION :20-JAN-2010,DURATION:76DAYS
     Route: 042
     Dates: start: 20091105, end: 20100120
  2. CISPLATIN [Suspect]
     Indication: HEAD AND NECK CANCER
     Dosage: MOST RECENT INFUSION :14-JAN-2010,RECENT INFUSION:14JAN2010,64DAYS
     Route: 042
     Dates: start: 20091111, end: 20100114
  3. TAXOTERE [Suspect]
     Indication: HEAD AND NECK CANCER
     Dosage: 64DAYS,RECENT INFUSION:14JAN2010
     Route: 042
     Dates: start: 20091111, end: 20100114
  4. FLUOROURACIL [Suspect]
     Indication: HEAD AND NECK CANCER
     Dosage: DOSAGE: DAY 1-5 EVERY 3 WEEKS.RECENT INFUS:18-JAN-2010,RECENT INFUSION:18JAN10,68DAYS
     Route: 042
     Dates: start: 20091111, end: 20100118
  5. NYSTATIN MOUTHWASH [Concomitant]
     Indication: ANTIFUNGAL PROPHYLAXIS
     Dosage: NO OF DOSAGE :3-4TIMES
     Dates: start: 20091125
  6. FOLIC ACID [Concomitant]
     Indication: SUPPORTIVE CARE
     Dosage: FORMULATION :CAPSULE,1DF=1 CAPSULE.
     Route: 048
     Dates: start: 20091205
  7. CHLORTETRACYCLINE [Concomitant]
     Indication: ERYTHEMA
     Route: 061
     Dates: start: 20100115, end: 20100115
  8. CHLORTETRACYCLINE [Concomitant]
     Indication: OEDEMA
     Route: 061
     Dates: start: 20100115, end: 20100115

REACTIONS (5)
  - CEREBRAL ISCHAEMIA [None]
  - ENDOCARDITIS [None]
  - NAUSEA [None]
  - RENAL FAILURE [None]
  - SEPSIS [None]
